FAERS Safety Report 8591978-3 (Version None)
Quarter: 2012Q3

REPORT INFORMATION
  Report Type: 
  Country: None (occurrence: None)
  Receive Date: 20120814
  Receipt Date: 20120807
  Transmission Date: 20120928
  Serious: Yes (Hospitalization, Other)
  Sender: FDA-Public Use
  Company Number: LB-SANOFI-AVENTIS-2012SA057287

PATIENT
  Age: 38 Year
  Sex: Female
  Weight: 55 kg

DRUGS (4)
  1. LOVENOX [Suspect]
     Route: 058
     Dates: start: 20110401
  2. LOVENOX [Suspect]
     Route: 058
  3. LOVENOX [Suspect]
     Route: 058
     Dates: end: 20120101
  4. ASPIRIN [Concomitant]
     Route: 048
     Dates: start: 20110401, end: 20110601

REACTIONS (3)
  - ANAEMIA [None]
  - ABORTION [None]
  - VAGINAL HAEMORRHAGE [None]
